FAERS Safety Report 8284321-0 (Version None)
Quarter: 2012Q2

REPORT INFORMATION
  Report Type: 
  Country: None (occurrence: None)
  Receive Date: 20120413
  Receipt Date: 20110519
  Transmission Date: 20120825
  Serious: No
  Sender: FDA-Public Use
  Company Number: US-ASTRAZENECA-2010SE35791

PATIENT
  Age: 779 Month
  Sex: Female
  Weight: 45.4 kg

DRUGS (3)
  1. NEXIUM [Suspect]
     Route: 048
     Dates: start: 20110401
  2. NEXIUM [Suspect]
     Route: 048
     Dates: start: 20100401, end: 20100801
  3. NEXIUM [Suspect]
     Indication: GASTROOESOPHAGEAL REFLUX DISEASE
     Route: 048
     Dates: start: 20100101

REACTIONS (5)
  - VISION BLURRED [None]
  - PHOTOPHOBIA [None]
  - NASAL CONGESTION [None]
  - VISUAL IMPAIRMENT [None]
  - THROAT IRRITATION [None]
